FAERS Safety Report 5019127-9 (Version None)
Quarter: 2006Q2

REPORT INFORMATION
  Report Type: 
  Country: None (occurrence: None)
  Receive Date: 20060531
  Receipt Date: 20060517
  Transmission Date: 20061013
  Serious: Yes (Other)
  Sender: FDA-Public Use
  Company Number: US-2006-012349

PATIENT
  Sex: Female

DRUGS (1)
  1. MIRENA [Suspect]
     Dosage: 20 UG/DAY, CONT, INTRA-UTERINE
     Route: 015
     Dates: start: 20051102, end: 20060512

REACTIONS (4)
  - COMPLICATION OF DEVICE REMOVAL [None]
  - CONTRACEPTIVE DEVICE COMPLICATION [None]
  - DEVICE BREAKAGE [None]
  - VAGINAL HAEMORRHAGE [None]
